FAERS Safety Report 8572583-1 (Version None)
Quarter: 2012Q3

REPORT INFORMATION
  Report Type: 
  Country: None (occurrence: None)
  Receive Date: 20120806
  Receipt Date: 20120730
  Transmission Date: 20120928
  Serious: Yes (Death)
  Sender: FDA-Public Use
  Company Number: CA-ROCHE-1095833

PATIENT
  Sex: Female

DRUGS (5)
  1. PANTOPRAZOLE SODIUM [Concomitant]
  2. MAGNESIUM OXIDE [Concomitant]
  3. CELEBREX [Concomitant]
  4. BACLOFEN [Concomitant]
  5. ZELBORAF [Suspect]
     Indication: METASTATIC MALIGNANT MELANOMA
     Route: 048
     Dates: start: 20120601, end: 20120701

REACTIONS (1)
  - DEATH [None]
